FAERS Safety Report 19204917 (Version 1)
Quarter: 2021Q2

REPORT INFORMATION
  Report Type: Spontaneous
  Country: US (occurrence: US)
  Receive Date: 20210503
  Receipt Date: 20210503
  Transmission Date: 20210717
  Serious: Yes (Other)
  Sender: FDA-Public Use
  Company Number: US-GLAXOSMITHKLINE-US2021GSK091211

PATIENT

DRUGS (2)
  1. RANITIDINE. [Suspect]
     Active Substance: RANITIDINE
     Indication: ULCER HAEMORRHAGE
     Dosage: 300 MG, QD
     Route: 065
     Dates: start: 201110, end: 201804
  2. RANITIDINE. [Suspect]
     Active Substance: RANITIDINE
     Indication: ULCER HAEMORRHAGE
     Dosage: 300 MG, QD
     Route: 065
     Dates: start: 201110, end: 201804

REACTIONS (1)
  - Prostate cancer [Unknown]
